FAERS Safety Report 5824601-9 (Version None)
Quarter: 2008Q3

REPORT INFORMATION
  Report Type: 
  Country: None (occurrence: None)
  Receive Date: 20080722
  Receipt Date: 20080703
  Transmission Date: 20090109
  Serious: Yes (Other)
  Sender: FDA-Public Use
  Company Number: 19748

PATIENT
  Age: 64 Year
  Sex: Female
  Weight: 78 kg

DRUGS (2)
  1. FLUOROURACIL [Suspect]
     Indication: RECTAL CANCER
     Dosage: 50 MG/ML; IV
     Route: 042
  2. CALCIUM FOLINATE [Suspect]
     Indication: RECTAL CANCER

REACTIONS (2)
  - STEVENS-JOHNSON SYNDROME [None]
  - TOXIC SKIN ERUPTION [None]
